FAERS Safety Report 5184711-9 (Version None)
Quarter: 2006Q4

REPORT INFORMATION
  Report Type: 
  Country: None (occurrence: None)
  Receive Date: 20061220
  Receipt Date: 20060417
  Transmission Date: 20070319
  Serious: No
  Sender: FDA-Public Use
  Company Number: US-GLAXOSMITHKLINE-A0602050A

PATIENT
  Age: 49 Year
  Sex: Female

DRUGS (2)
  1. NICODERM CQ [Suspect]
  2. COMMIT [Suspect]

REACTIONS (9)
  - BLOOD PRESSURE INCREASED [None]
  - CHEST DISCOMFORT [None]
  - DYSPNOEA [None]
  - HEART RATE INCREASED [None]
  - NAUSEA [None]
  - NICOTINE DEPENDENCE [None]
  - PALPITATIONS [None]
  - STOMACH DISCOMFORT [None]
  - VOMITING [None]
